FAERS Safety Report 4512340-6 (Version None)
Quarter: 2004Q4

REPORT INFORMATION
  Report Type: 
  Country: None (occurrence: None)
  Receive Date: 20041129
  Receipt Date: 20041115
  Transmission Date: 20050328
  Serious: Yes (Life-Threatening)
  Sender: FDA-Public Use
  Company Number: AT-GLAXOSMITHKLINE-B0358106A

PATIENT

DRUGS (1)
  1. SEROXAT [Suspect]
     Indication: DRUG USE FOR UNKNOWN INDICATION
     Dosage: 20MG PER DAY

REACTIONS (3)
  - AGITATION [None]
  - DRUG EXPOSURE DURING PREGNANCY [None]
  - RESPIRATORY ARREST [None]
